FAERS Safety Report 19926368 (Version 1)
Quarter: 2021Q4

REPORT INFORMATION
  Report Type: Spontaneous
  Country: US (occurrence: US)
  Receive Date: 20211007
  Receipt Date: 20211007
  Transmission Date: 20220303
  Serious: No
  Sender: FDA-Public Use
  Company Number: US-TOLMAR, INC.-21US028483

PATIENT
  Age: 42 Year
  Sex: Female
  Weight: 49.9 kg

DRUGS (6)
  1. ELIGARD [Suspect]
     Active Substance: LEUPROLIDE ACETATE
     Indication: Breast cancer metastatic
     Dosage: 7.5 MILLIGRAM, Q 1 MONTH
     Dates: start: 20210210
  2. ELIGARD [Suspect]
     Active Substance: LEUPROLIDE ACETATE
     Dosage: 7.5 MILLIGRAM, Q 1 MONTH
     Dates: start: 20210603
  3. IBRANCE [Suspect]
     Active Substance: PALBOCICLIB
     Indication: Breast cancer metastatic
     Dosage: 125 MILLIGRAM, 21 DAYS ON AND 7 DAYS OFF
     Dates: start: 20210210
  4. ZOMETA [Suspect]
     Active Substance: ZOLEDRONIC ACID
     Indication: Breast cancer metastatic
     Dosage: UNK, Q 1 MONTH
     Dates: start: 20210210
  5. LEUKINE [Concomitant]
     Active Substance: SARGRAMOSTIM
     Indication: Neutropenia
  6. OXYCODONE [Concomitant]
     Active Substance: OXYCODONE
     Indication: Cancer pain

REACTIONS (7)
  - Mood swings [Unknown]
  - Somnolence [Not Recovered/Not Resolved]
  - Depression [Unknown]
  - Libido decreased [Unknown]
  - Arthralgia [Unknown]
  - Hot flush [Not Recovered/Not Resolved]
  - Off label use [Not Recovered/Not Resolved]

NARRATIVE: CASE EVENT DATE: 20210101
